FAERS Safety Report 6090574-X (Version None)
Quarter: 2009Q1

REPORT INFORMATION
  Report Type: 
  Country: None (occurrence: None)
  Receive Date: 20090224
  Receipt Date: 20090119
  Transmission Date: 20090719
  Serious: No
  Sender: FDA-Public Use
  Company Number: US-ABBOTT-09P-163-0498866-00

PATIENT
  Sex: Male
  Weight: 106.69 kg

DRUGS (2)
  1. SIMCOR [Suspect]
     Indication: BLOOD TRIGLYCERIDES INCREASED
     Dosage: UNKNOWN
     Route: 048
     Dates: start: 20090119
  2. AMLODIPINE BESYLATE W/BENAZEPRIL [Concomitant]
     Indication: HYPERTENSION
     Dates: start: 20090119

REACTIONS (1)
  - FLUSHING [None]
